FAERS Safety Report 17654738 (Version 1)
Quarter: 2020Q2

REPORT INFORMATION
  Report Type: Spontaneous
  Country: US (occurrence: US)
  Receive Date: 20200409
  Receipt Date: 20200409
  Transmission Date: 20200713
  Serious: No
  Sender: FDA-Public Use
  Company Number: None

PATIENT
  Age: 70 Year
  Sex: Male

DRUGS (1)
  1. ELELYSO [Suspect]
     Active Substance: TALIGLUCERASE ALFA
     Indication: GAUCHER^S DISEASE
     Dosage: ?          OTHER STRENGTH:200 U/VL;?
     Route: 042
     Dates: start: 20170724

REACTIONS (2)
  - Multiple injuries [None]
  - Fall [None]

NARRATIVE: CASE EVENT DATE: 202004
